FAERS Safety Report 4878134-7 (Version None)
Quarter: 2005Q4

REPORT INFORMATION
  Report Type: 
  Country: None (occurrence: None)
  Receive Date: 20051209
  Receipt Date: 20051103
  Transmission Date: 20060501
  Serious: No
  Sender: FDA-Public Use
  Company Number: COV2-2005-00489

PATIENT
  Age: 67 Year
  Sex: Male
  Weight: 58.514 kg

DRUGS (1)
  1. FOSRENOL [Suspect]
     Indication: HYPERPHOSPHATAEMIA
     Dosage: 500 MG, 3X/DAY:TID, ORAL
     Route: 048
     Dates: start: 20050523, end: 20050527

REACTIONS (2)
  - NAUSEA [None]
  - VOMITING [None]
